FAERS Safety Report 4567891-5 (Version None)
Quarter: 2005Q1

REPORT INFORMATION
  Report Type: 
  Country: None (occurrence: None)
  Receive Date: 20050202
  Receipt Date: 20041228
  Transmission Date: 20050727
  Serious: No
  Sender: FDA-Public Use
  Company Number: US-GLAXOSMITHKLINE-A0538568A

PATIENT

DRUGS (1)
  1. AVANDAMET [Suspect]
     Route: 048
     Dates: start: 20041101

REACTIONS (1)
  - DIARRHOEA [None]
